FAERS Safety Report 14605071 (Version 1)
Quarter: 2018Q1

REPORT INFORMATION
  Report Type: Spontaneous
  Country: US (occurrence: US)
  Receive Date: 20180306
  Receipt Date: 20180306
  Transmission Date: 20180509
  Serious: No
  Sender: FDA-Public Use
  Company Number: None

PATIENT
  Age: 63 Year
  Sex: Male
  Weight: 145.8 kg

DRUGS (22)
  1. ASPIRIN. [Concomitant]
     Active Substance: ASPIRIN
  2. CONCERTA [Concomitant]
     Active Substance: METHYLPHENIDATE HYDROCHLORIDE
  3. DEXILANT [Concomitant]
     Active Substance: DEXLANSOPRAZOLE
  4. LOSARTAN-HCTZ [Concomitant]
     Active Substance: HYDROCHLOROTHIAZIDE\LOSARTAN
  5. NITROLINGUAL [Concomitant]
     Active Substance: NITROGLYCERIN
  6. RANEXA [Concomitant]
     Active Substance: RANOLAZINE
  7. VITAMIN A [Concomitant]
     Active Substance: VITAMIN A
  8. METHYLPHENIDATE ER 36 MG TAB [Suspect]
     Active Substance: METHYLPHENIDATE HYDROCHLORIDE
     Indication: ATTENTION DEFICIT/HYPERACTIVITY DISORDER
     Dosage: ?          QUANTITY:30 TABLET(S);OTHER FREQUENCY:2 PILLS IN MORNING;?
     Route: 048
     Dates: start: 19980601
  9. AZELASTINE. [Concomitant]
     Active Substance: AZELASTINE HYDROCHLORIDE
  10. KLOR-CON M20 [Concomitant]
     Active Substance: POTASSIUM CHLORIDE
  11. LEVOCETIRIZINE [Concomitant]
     Active Substance: LEVOCETIRIZINE
  12. TIZANIDINE HCL [Concomitant]
     Active Substance: TIZANIDINE HYDROCHLORIDE
  13. CVS DAILY MULTIPLE VITAMIN [Concomitant]
  14. ISOSORBIDE MN ER (IMDUR) [Concomitant]
  15. ATORVASTATIN [Concomitant]
     Active Substance: ATORVASTATIN
  16. MELOXICAM. [Concomitant]
     Active Substance: MELOXICAM
  17. METOPROLOL SUCC ER (TOPROL) [Concomitant]
  18. ROPINIROLE HCL (REQUIP) [Concomitant]
  19. NEURONTIN [Concomitant]
     Active Substance: GABAPENTIN
  20. NASONEX [Concomitant]
     Active Substance: MOMETASONE FUROATE
  21. FUROSEMIDE. [Concomitant]
     Active Substance: FUROSEMIDE
  22. VITAMIN D [Concomitant]
     Active Substance: CHOLECALCIFEROL

REACTIONS (3)
  - Therapeutic response shortened [None]
  - Product substitution issue [None]
  - Drug effect delayed [None]

NARRATIVE: CASE EVENT DATE: 20180301
